FAERS Safety Report 9462246 (Version 2)
Quarter: 2013Q3

REPORT INFORMATION
  Report Type: Report from Study
  Country: US (occurrence: US)
  Receive Date: 20130816
  Receipt Date: 20130916
  Transmission Date: 20140515
  Serious: Yes (Hospitalization)
  Sender: FDA-Public Use
  Company Number: US-GLAXOSMITHKLINE-A1035761B

PATIENT
  Age: 62 Year
  Sex: Male
  Weight: 54 kg

DRUGS (4)
  1. PAZOPANIB [Suspect]
     Indication: PROSTATE CANCER
     Dosage: 600MG PER DAY
     Route: 048
     Dates: start: 20130612
  2. DOCETAXEL [Suspect]
     Indication: PROSTATE CANCER
     Route: 042
     Dates: start: 20130611
  3. PREDNISONE [Suspect]
     Indication: PROSTATE CANCER
     Dosage: 5MG TWICE PER DAY
     Route: 048
     Dates: start: 20130605, end: 20130625
  4. DENOSUMAB [Concomitant]

REACTIONS (1)
  - Hypocalcaemia [Recovered/Resolved]
